FAERS Safety Report 11871720 (Version 3)
Quarter: 2024Q4

REPORT INFORMATION
  Report Type: Spontaneous
  Country: FR (occurrence: FR)
  Receive Date: 20151228
  Receipt Date: 20241010
  Transmission Date: 20250115
  Serious: Yes (Other)
  Sender: MYLAN
  Company Number: FR-MYLANLABS-2015M1046604

PATIENT
  Age: 64 Year
  Sex: Female

DRUGS (3)
  1. TERBINAFINE [Interacting]
     Active Substance: TERBINAFINE\TERBINAFINE HYDROCHLORIDE
     Indication: Product used for unknown indication
     Dosage: UNK SYSTEMIC LOCAL TREATMENT
     Route: 065
  2. CYCLOSPORINE [Interacting]
     Active Substance: CYCLOSPORINE
     Indication: Product used for unknown indication
     Dosage: 100 MILLIGRAM, QD
     Route: 065
  3. PREDNISOLONE [Concomitant]
     Active Substance: PREDNISOLONE
     Indication: Kaposi^s sarcoma
     Dosage: 10 MILLIGRAM, QD
     Route: 065

REACTIONS (2)
  - Renal impairment [Unknown]
  - Drug interaction [Unknown]
